FAERS Safety Report 4606384-3 (Version None)
Quarter: 2005Q1

REPORT INFORMATION
  Report Type: 
  Country: None (occurrence: None)
  Receive Date: 20050311
  Receipt Date: 20050228
  Transmission Date: 20050727
  Serious: Yes (Hospitalization)
  Sender: FDA-Public Use
  Company Number: ES-MERCK-0503USA00426

PATIENT
  Age: 77 Year
  Sex: Male

DRUGS (8)
  1. HYDRODIURIL [Suspect]
     Indication: HYPERTENSION
     Route: 048
  2. AMLODIPINE BESYLATE [Suspect]
     Indication: HYPERTENSION
     Route: 065
  3. PRINIVIL [Suspect]
     Indication: HYPERTENSION
     Route: 048
  4. DOXAZOSIN MESYLATE [Suspect]
     Indication: HYPERTENSION
     Route: 065
  5. DOXAZOSIN MESYLATE [Suspect]
     Route: 065
  6. QUINAPRIL HCL [Suspect]
     Indication: HYPERTENSION
     Route: 065
  7. QUINAPRIL HCL [Suspect]
     Route: 065
  8. AMLODIPINE BESYLATE [Suspect]
     Route: 065

REACTIONS (36)
  - ABDOMINAL PAIN [None]
  - ASTHENIA [None]
  - ATRIOVENTRICULAR BLOCK [None]
  - BLOOD CREATINE PHOSPHOKINASE INCREASED [None]
  - BLOOD CREATINE PHOSPHOKINASE MB INCREASED [None]
  - BLOOD PRESSURE INADEQUATELY CONTROLLED [None]
  - BODY TEMPERATURE DECREASED [None]
  - BRADYCARDIA [None]
  - CEREBROVASCULAR ACCIDENT [None]
  - COUGH [None]
  - CYANOSIS [None]
  - DEPRESSED LEVEL OF CONSCIOUSNESS [None]
  - DRUG INEFFECTIVE [None]
  - DRUG INTERACTION [None]
  - DYSPNOEA [None]
  - HAEMODIALYSIS [None]
  - HYPERGLYCAEMIA [None]
  - HYPERKALAEMIA [None]
  - HYPERTENSION [None]
  - HYPOCALCAEMIA [None]
  - HYPONATRAEMIA [None]
  - HYPOTENSION [None]
  - LEGIONELLA SEROLOGY POSITIVE [None]
  - METABOLIC ACIDOSIS [None]
  - OEDEMA PERIPHERAL [None]
  - ORTHOPNOEA [None]
  - PERIPHERAL COLDNESS [None]
  - PRODUCTIVE COUGH [None]
  - PULSE ABSENT [None]
  - RENAL FAILURE [None]
  - RENAL IMPAIRMENT [None]
  - RESPIRATORY TRACT INFECTION [None]
  - RHYTHM IDIOVENTRICULAR [None]
  - SEPTIC SHOCK [None]
  - TACHYPNOEA [None]
  - VASCULAR RESISTANCE SYSTEMIC DECREASED [None]
